FAERS Safety Report 8503155-2 (Version None)
Quarter: 2012Q3

REPORT INFORMATION
  Report Type: 
  Country: None (occurrence: None)
  Receive Date: 20120711
  Receipt Date: 20120709
  Transmission Date: 20120928
  Serious: No
  Sender: FDA-Public Use
  Company Number: US-PFIZER INC-2012164022

PATIENT
  Age: 67 Year
  Sex: Male

DRUGS (8)
  1. DALIRESP [Suspect]
     Indication: BRONCHITIS CHRONIC
     Dosage: 500 UG, 1X/DAY (500 MCG, 1 IN 1 D, ORAL)
     Route: 048
     Dates: start: 20120625
  2. LIPITOR [Suspect]
     Indication: BLOOD CHOLESTEROL INCREASED
     Dosage: UNK
  3. SINGULAIR [Concomitant]
     Indication: ASTHMA
     Dosage: UNK
  4. CLONIDINE [Concomitant]
     Indication: HYPERTENSION
     Dosage: UNK
  5. ADVAIR DISKUS 100/50 [Concomitant]
     Indication: ASTHMA
     Dosage: UNK
  6. SPIRIVA [Concomitant]
     Indication: ASTHMA
     Dosage: UNK
  7. CLOBETASOL [Concomitant]
     Indication: PSORIASIS
     Dosage: UNK
  8. AMLODIPINE [Concomitant]
     Dosage: UNK

REACTIONS (1)
  - DYSPNOEA [None]
